FAERS Safety Report 19719924 (Version 1)
Quarter: 2021Q3

REPORT INFORMATION
  Report Type: Spontaneous
  Country: US (occurrence: US)
  Receive Date: 20210819
  Receipt Date: 20210819
  Transmission Date: 20211014
  Serious: No
  Sender: FDA-Public Use
  Company Number: None

PATIENT
  Age: 73 Year
  Sex: Male
  Weight: 124 kg

DRUGS (1)
  1. NINTEDANIB (NINTEDANIB 150MG CAP,ORAL) [Suspect]
     Active Substance: NINTEDANIB
     Indication: INTERSTITIAL LUNG DISEASE
     Route: 048
     Dates: start: 20210211, end: 20210316

REACTIONS (2)
  - Pulmonary oedema [None]
  - Therapy cessation [None]

NARRATIVE: CASE EVENT DATE: 20210316
